FAERS Safety Report 17977469 (Version 2)
Quarter: 2020Q3

REPORT INFORMATION
  Report Type: Report from Study
  Country: GR (occurrence: GR)
  Receive Date: 20200703
  Receipt Date: 20200722
  Transmission Date: 20201103
  Serious: Yes (Hospitalization)
  Sender: FDA-Public Use
  Company Number: GR-BAUSCH-BL-2020-018723

PATIENT
  Age: 63 Year
  Sex: Male
  Weight: 105 kg

DRUGS (4)
  1. ATENOLOL. [Concomitant]
     Active Substance: ATENOLOL
     Indication: HYPERTENSION
     Route: 065
     Dates: start: 2014
  2. CANDESARTAN. [Concomitant]
     Active Substance: CANDESARTAN
     Indication: HYPERTENSION
     Route: 065
     Dates: start: 2003
  3. METHOTREXATE. [Concomitant]
     Active Substance: METHOTREXATE
     Indication: PSORIASIS
     Route: 048
     Dates: start: 20200610
  4. KYNTHEUM (BRODALUMAB) [Suspect]
     Active Substance: BRODALUMAB
     Indication: PSORIASIS
     Dosage: 210 MG IN WEEKS 0,1,2 AND THEN BI?WEEKLY
     Route: 058
     Dates: start: 20191104

REACTIONS (3)
  - Arthralgia [Recovering/Resolving]
  - Transaminases increased [Recovering/Resolving]
  - Porphyria [Recovering/Resolving]

NARRATIVE: CASE EVENT DATE: 20200610
